FAERS Safety Report 11173342 (Version 1)
Quarter: 2015Q2

REPORT INFORMATION
  Report Type: Other
  Country: FR (occurrence: FR)
  Receive Date: 20150608
  Receipt Date: 20150608
  Transmission Date: 20150821
  Serious: Yes (Other)
  Sender: FDA-Public Use
  Company Number: FR-MYLANLABS-2015M1018596

PATIENT

DRUGS (1)
  1. VANCOMYCINE [Suspect]
     Active Substance: VANCOMYCIN
     Indication: FOLLICULITIS
     Dosage: UNK
     Dates: start: 20090130, end: 20090206

REACTIONS (4)
  - Cerebellar ataxia [Unknown]
  - Confusional state [Unknown]
  - Toxic skin eruption [Unknown]
  - Optic neuropathy [Unknown]

NARRATIVE: CASE EVENT DATE: 2009
